FAERS Safety Report 8833858 (Version 2)
Quarter: 2012Q4

REPORT INFORMATION
  Report Type: 
  Country: DE (occurrence: DE)
  Receive Date: 20121010
  Receipt Date: 20121115
  Transmission Date: 20130627
  Serious: Yes (Other)
  Sender: FDA-Public Use
  Company Number: DE-ELI_LILLY_AND_COMPANY-DE201209008092

PATIENT
  Age: 40 Year
  Sex: Female

DRUGS (3)
  1. CYMBALTA [Suspect]
     Indication: SCHIZOPHRENIA
     Dosage: 1 DF, unknown
     Route: 048
  2. CERAZETTE [Concomitant]
  3. ABILIFY [Concomitant]

REACTIONS (2)
  - Paraesthesia [Recovered/Resolved]
  - Off label use [Not Recovered/Not Resolved]
